FAERS Safety Report 7321270-6 (Version None)
Quarter: 2011Q1

REPORT INFORMATION
  Report Type: 
  Country: None (occurrence: None)
  Receive Date: 20110228
  Receipt Date: 20100308
  Transmission Date: 20110831
  Serious: No
  Sender: FDA-Public Use
  Company Number: US-PFIZER INC-2010033764

PATIENT

DRUGS (2)
  1. CYMBALTA [Concomitant]
  2. GEODON [Suspect]

REACTIONS (1)
  - FEELING JITTERY [None]
